FAERS Safety Report 10040871 (Version 1)
Quarter: 2014Q1

REPORT INFORMATION
  Report Type: Spontaneous
  Country: US (occurrence: None)
  Receive Date: 20140326
  Receipt Date: 20140326
  Transmission Date: 20141002
  Serious: Yes (Life-Threatening)
  Sender: FDA-Public Use
  Company Number: None

PATIENT
  Age: 53 Year
  Sex: Female
  Weight: 86.18 kg

DRUGS (1)
  1. LISINOPRIL 5 MG [Suspect]
     Indication: HYPERTENSION
     Dosage: LISINOPRIL ONCE DAILY TAKEN BY MOUTH
     Route: 048
     Dates: start: 20140317, end: 20140322

REACTIONS (10)
  - Heart rate increased [None]
  - Syncope [None]
  - Asthenia [None]
  - Heart rate irregular [None]
  - Pharyngeal oedema [None]
  - Lip swelling [None]
  - Hypoaesthesia oral [None]
  - Rash generalised [None]
  - Cough [None]
  - Dry mouth [None]
